FAERS Safety Report 5223577-5 (Version None)
Quarter: 2007Q1

REPORT INFORMATION
  Report Type: 
  Country: None (occurrence: None)
  Receive Date: 20070125
  Receipt Date: 20070116
  Transmission Date: 20070707
  Serious: Yes (Hospitalization)
  Sender: FDA-Public Use
  Company Number: 235164

PATIENT
  Age: 73 Year
  Sex: Female

DRUGS (3)
  1. AVASTIN [Suspect]
     Indication: OVARIAN CANCER
     Dosage: 660 MG, INTRAVENOUS
     Route: 042
     Dates: start: 20070105, end: 20070105
  2. CARBOPLATIN [Suspect]
     Indication: OVARIAN CANCER
     Dosage: 167 MG, INTRAVENOUS
     Route: 042
     Dates: start: 20070105, end: 20070105
  3. GEMCITABINE [Suspect]
     Indication: OVARIAN CANCER
     Dosage: 1700 MG, INTRAVENOUS
     Route: 042
     Dates: start: 20070105, end: 20070105

REACTIONS (16)
  - ALANINE AMINOTRANSFERASE INCREASED [None]
  - ASPARTATE AMINOTRANSFERASE INCREASED [None]
  - BACK PAIN [None]
  - BLOOD POTASSIUM INCREASED [None]
  - BLOOD SODIUM DECREASED [None]
  - CHEST PAIN [None]
  - CONDITION AGGRAVATED [None]
  - DISEASE PROGRESSION [None]
  - DYSURIA [None]
  - FALL [None]
  - LYMPHADENOPATHY [None]
  - METASTASES TO LIVER [None]
  - METASTATIC NEOPLASM [None]
  - NODULE [None]
  - PERITONEAL DISORDER [None]
  - PLATELET COUNT DECREASED [None]
